FAERS Safety Report 8494090-7 (Version None)
Quarter: 2012Q3

REPORT INFORMATION
  Report Type: 
  Country: None (occurrence: None)
  Receive Date: 20120702
  Receipt Date: 20120702
  Transmission Date: 20120928
  Serious: Yes (Other)
  Sender: FDA-Public Use
  Company Number: None

PATIENT
  Sex: Male
  Weight: 73.4827 kg

DRUGS (2)
  1. RISPERIDONE [Suspect]
     Indication: OBSESSIVE-COMPULSIVE DISORDER
     Dosage: YEARS
  2. RISPERIDONE [Suspect]
     Indication: TOURETTE'S DISORDER
     Dosage: YEARS

REACTIONS (4)
  - PRODUCT SUBSTITUTION ISSUE [None]
  - DYSTONIA [None]
  - DYSKINESIA [None]
  - MUSCLE SPASMS [None]
